FAERS Safety Report 8787478 (Version 3)
Quarter: 2012Q4

REPORT INFORMATION
  Report Type: 
  Country: US (occurrence: US)
  Receive Date: 20120914
  Receipt Date: 20121226
  Transmission Date: 20130627
  Serious: No
  Sender: FDA-Public Use
  Company Number: US-VERTEX PHARMACEUTICAL INC.-AE-2012-009998

PATIENT
  Age: 45 Year
  Sex: Male
  Weight: 90.91 kg

DRUGS (13)
  1. INCIVEK [Suspect]
     Indication: HEPATITIS C
     Dosage: 750 mg, tid
     Route: 048
     Dates: start: 20110907, end: 20111129
  2. PEGINTERFERON [Concomitant]
     Indication: HEPATITIS C
     Dates: start: 20110907
  3. RIBAVIRIN [Concomitant]
     Indication: HEPATITIS C
     Dates: start: 20110907
  4. ASPIRIN [Concomitant]
  5. ENALAPRIL [Concomitant]
  6. METOPROLOL TARTRATE [Concomitant]
  7. VITAMIN K                          /00032401/ [Concomitant]
     Dosage: UNK
  8. WARFARIN SODIUM [Concomitant]
     Dosage: 6 mg, qd
     Dates: start: 201101, end: 20110909
  9. WARFARIN SODIUM [Concomitant]
     Dosage: 5 mg, qd
     Dates: start: 20110914, end: 20110920
  10. WARFARIN SODIUM [Concomitant]
     Dosage: 6 mg, qd
     Dates: start: 20110921, end: 201109
  11. WARFARIN SODIUM [Concomitant]
     Dosage: 9 mg, qd
     Dates: start: 201110, end: 20111202
  12. WARFARIN SODIUM [Concomitant]
     Dosage: 7.5 mg, qd
     Dates: start: 20111202, end: 201112
  13. WARFARIN SODIUM [Concomitant]
     Dosage: 7 mg, qd
     Dates: start: 201112

REACTIONS (2)
  - International normalised ratio fluctuation [Recovered/Resolved]
  - Drug interaction [None]
